FAERS Safety Report 8053937-9 (Version None)
Quarter: 2012Q1

REPORT INFORMATION
  Report Type: 
  Country: None (occurrence: None)
  Receive Date: 20120118
  Receipt Date: 20120110
  Transmission Date: 20120608
  Serious: Yes (Other)
  Sender: FDA-Public Use
  Company Number: US-ABBOTT-12P-163-0892293-00

PATIENT
  Sex: Female
  Weight: 66.284 kg

DRUGS (18)
  1. CORTICOSTEROIDS [Suspect]
     Indication: GUILLAIN-BARRE SYNDROME
     Dosage: MASSIVE DOSES
  2. VITAMIN B COMPLEX CAP [Concomitant]
     Indication: VITAMIN SUPPLEMENTATION
  3. BENADRYL [Concomitant]
     Indication: PROPHYLAXIS
     Dosage: 25 TO 50 MG, TAKEN WITH NORCO
  4. NORCO [Concomitant]
     Indication: PAIN
     Dosage: 10/500, TAKEN WITH BENADRYL, 25 TO 50 MG
  5. LASIX [Concomitant]
     Indication: OEDEMA PERIPHERAL
  6. HALCION [Concomitant]
     Indication: SLEEP DISORDER THERAPY
  7. VITAMIN B-12 [Concomitant]
     Indication: VITAMIN SUPPLEMENTATION
  8. VITAMIN D [Concomitant]
     Indication: VITAMIN SUPPLEMENTATION
  9. ADVAIR DISKUS 100/50 [Concomitant]
     Indication: ASTHMA
  10. HUMIRA [Suspect]
     Indication: RHEUMATOID ARTHRITIS
     Dosage: EVERY WEEK TO TWO WEEKS
     Dates: start: 20060101
  11. PREVACID [Concomitant]
     Indication: GASTROOESOPHAGEAL REFLUX DISEASE
  12. DIOVAN [Concomitant]
     Indication: HYPERTENSION
  13. COUMADIN [Concomitant]
     Indication: CARDIOLIPIN ANTIBODY
  14. XOPENEX [Concomitant]
     Indication: ASTHMA
  15. VALIUM [Concomitant]
     Indication: ANXIETY
  16. OGEN [Concomitant]
     Indication: HORMONE REPLACEMENT THERAPY
  17. VITAMIN E [Concomitant]
     Indication: VITAMIN SUPPLEMENTATION
  18. FISH OIL WITH OMEGA [Concomitant]
     Indication: SUPPLEMENTATION THERAPY

REACTIONS (7)
  - MYOPATHY [None]
  - LOSS OF CONSCIOUSNESS [None]
  - PNEUMONIA [None]
  - VASCULITIS [None]
  - FIBROMYALGIA [None]
  - GUILLAIN-BARRE SYNDROME [None]
  - RHEUMATOID ARTHRITIS [None]
